FAERS Safety Report 9193368 (Version 1)
Quarter: 2013Q1

REPORT INFORMATION
  Report Type: Spontaneous
  Country: US (occurrence: US)
  Receive Date: 20130327
  Receipt Date: 20130327
  Transmission Date: 20140127
  Serious: No
  Sender: FDA-Public Use
  Company Number: US-PFIZER INC-2013097271

PATIENT
  Sex: Female

DRUGS (1)
  1. NEURONTIN [Suspect]
     Dosage: 3 DF, 1X/DAY (3 NEURONTIN AT ONE TIME LAST NIGHT)

REACTIONS (4)
  - Intentional drug misuse [Unknown]
  - Diarrhoea [Unknown]
  - Dyspepsia [Unknown]
  - Therapeutic response unexpected [Unknown]
